FAERS Safety Report 13364904 (Version 5)
Quarter: 2017Q3

REPORT INFORMATION
  Report Type: Spontaneous
  Country: JP (occurrence: JP)
  Receive Date: 20170323
  Receipt Date: 20170727
  Transmission Date: 20171127
  Serious: Yes (Hospitalization, Other)
  Sender: FDA-Public Use
  Company Number: PHJP2017JP009866

PATIENT
  Age: 79 Year
  Sex: Male

DRUGS (1)
  1. ZOMETA [Suspect]
     Active Substance: ZOLEDRONIC ACID
     Indication: METASTASES TO BONE
     Dosage: 4 MG, UNK
     Route: 041
     Dates: start: 2007, end: 2011

REACTIONS (11)
  - Fistula [Unknown]
  - Osteitis [Unknown]
  - Exposed bone in jaw [Unknown]
  - Second primary malignancy [Unknown]
  - Erythema [Unknown]
  - Osteosclerosis [Unknown]
  - Swelling face [Unknown]
  - Gastrointestinal carcinoma [Unknown]
  - Primary sequestrum [Unknown]
  - Osteonecrosis of jaw [Recovered/Resolved]
  - Jaw fracture [Unknown]

NARRATIVE: CASE EVENT DATE: 201102
